FAERS Safety Report 19825445 (Version 2)
Quarter: 2021Q3

REPORT INFORMATION
  Report Type: Spontaneous
  Country: PK (occurrence: PK)
  Receive Date: 20210914
  Receipt Date: 20210927
  Transmission Date: 20211014
  Serious: Yes (Death)
  Sender: FDA-Public Use
  Company Number: PK-NOVOPROD-845577

PATIENT
  Age: 24 Month
  Sex: Female
  Weight: 4 kg

DRUGS (1)
  1. NORDITROPIN [Suspect]
     Active Substance: SOMATROPIN
     Indication: BLOOD GROWTH HORMONE ABNORMAL
     Dosage: UNK
     Route: 058
     Dates: start: 20210812, end: 20210818

REACTIONS (1)
  - Death [Fatal]

NARRATIVE: CASE EVENT DATE: 20210819
